FAERS Safety Report 5747628-4 (Version None)
Quarter: 2008Q2

REPORT INFORMATION
  Report Type: 
  Country: None (occurrence: None)
  Receive Date: 20080523
  Receipt Date: 20080514
  Transmission Date: 20081010
  Serious: Yes (Other)
  Sender: FDA-Public Use
  Company Number: ES-WYE-H04154308

PATIENT
  Age: 74 Year
  Sex: Male

DRUGS (8)
  1. PANTOPRAZOLE SODIUM [Interacting]
     Dosage: 20 MG, FREQUENCY UNKNOWN
  2. ADIRO [Interacting]
     Dosage: 100 MG, FREQUENCY UNKNOWN
  3. ISOPHANE INSULIN [Suspect]
     Dosage: UNKNOWN
  4. CARDYL [Interacting]
     Dosage: 40 MG, FREQUENCY UNKNOWN
  5. NEURONTIN [Interacting]
     Dosage: 400 MG, FREQUENCY UNKNOWN
  6. EXELON [Interacting]
     Indication: AMNESIA
     Dosage: 2 MG/ML  FREQUENCY UNKNOWN
     Dates: start: 19961201
  7. DIANBEN [Interacting]
     Dosage: 850 MG, FREQUENCY UNKNOWN
     Dates: end: 20080219
  8. AXURA [Interacting]
     Dosage: 10 MG, FREQUENCY UNKNOWN
     Dates: start: 20071201, end: 20080219

REACTIONS (8)
  - AMNESIA [None]
  - CONDITION AGGRAVATED [None]
  - COORDINATION ABNORMAL [None]
  - DISORIENTATION [None]
  - DIZZINESS [None]
  - DRUG INTERACTION [None]
  - INSOMNIA [None]
  - SYNCOPE [None]
